FAERS Safety Report 5758099-6 (Version None)
Quarter: 2008Q2

REPORT INFORMATION
  Report Type: 
  Country: None (occurrence: None)
  Receive Date: 20080530
  Receipt Date: 20080516
  Transmission Date: 20081010
  Serious: Yes (Hospitalization)
  Sender: FDA-Public Use
  Company Number: US-1166158

PATIENT
  Age: 21 Month
  Sex: Male
  Weight: 14 kg

DRUGS (1)
  1. IOPIDINE [Suspect]
     Dosage: ORAL
     Route: 048

REACTIONS (7)
  - ABASIA [None]
  - DEPRESSED LEVEL OF CONSCIOUSNESS [None]
  - LETHARGY [None]
  - OXYGEN SATURATION DECREASED [None]
  - PALLOR [None]
  - RESPIRATORY RATE INCREASED [None]
  - SOMNOLENCE [None]
